FAERS Safety Report 6501329-3 (Version None)
Quarter: 2009Q4

REPORT INFORMATION
  Report Type: 
  Country: None (occurrence: None)
  Receive Date: 20091215
  Receipt Date: 20091215
  Transmission Date: 20100525
  Serious: Yes (Other)
  Sender: FDA-Public Use
  Company Number: None

PATIENT
  Sex: Female
  Weight: 87.5 kg

DRUGS (25)
  1. FERAHEME [Suspect]
     Indication: ANAEMIA
     Dosage: 510MG IV ONE TIME
     Dates: start: 20091111
  2. BENADRYL [Concomitant]
  3. EPOGEN [Concomitant]
  4. FLUVIRIN [Concomitant]
  5. TUBERSOL [Concomitant]
  6. ZEMPLAR [Concomitant]
  7. HEPARIN RECIRULATION [Concomitant]
  8. HEPARIN [Concomitant]
  9. BACTROBAN [Concomitant]
  10. HEPARIN DWELL [Concomitant]
  11. SODIUM CHLORIDE [Concomitant]
  12. TYLENOL (CAPLET) [Concomitant]
  13. QUINAPRIL HCI [Concomitant]
  14. LANTUS [Concomitant]
  15. CARVEDILOL [Concomitant]
  16. SENSIPAR [Concomitant]
  17. FUROSEMIDE [Concomitant]
  18. PLAVIX [Concomitant]
  19. ERGOCALCIFEROL (VITAMIN D2) [Concomitant]
  20. ZETIA [Concomitant]
  21. SIMVASTATIN [Concomitant]
  22. NOVOLOG [Concomitant]
  23. ASPIRIN [Concomitant]
  24. NITROGLYCERIN [Concomitant]
  25. CYANOCOBALAMIN [Concomitant]

REACTIONS (8)
  - COLD SWEAT [None]
  - DYSGEUSIA [None]
  - EAR DISCOMFORT [None]
  - FEELING ABNORMAL [None]
  - FEELING COLD [None]
  - FEELING HOT [None]
  - PALLOR [None]
  - PAROSMIA [None]
